FAERS Safety Report 9571438 (Version 1)
Quarter: 2013Q3

REPORT INFORMATION
  Report Type: Spontaneous
  Country: US (occurrence: None)
  Receive Date: 20130927
  Receipt Date: 20130927
  Transmission Date: 20140515
  Serious: Yes (Life-Threatening, Hospitalization)
  Sender: FDA-Public Use
  Company Number: None

PATIENT
  Age: 70 Year
  Sex: Male
  Weight: 97.52 kg

DRUGS (6)
  1. ENOXAPARIN SODIUM [Suspect]
     Indication: ANTICOAGULANT THERAPY
     Dates: start: 201307, end: 201307
  2. NORVASC [Concomitant]
  3. WARFARIN [Concomitant]
  4. LISINOPRIL [Concomitant]
  5. CALCIUM [Concomitant]
  6. MILK THISTLE [Concomitant]

REACTIONS (10)
  - Epistaxis [None]
  - Haematoma [None]
  - Abdominal pain [None]
  - Renal failure [None]
  - Type 1 diabetes mellitus [None]
  - Haemorrhage [None]
  - Pyrexia [None]
  - Asthenia [None]
  - Constipation [None]
  - Activities of daily living impaired [None]
